FAERS Safety Report 12541447 (Version 1)
Quarter: 2016Q3

REPORT INFORMATION
  Report Type: Spontaneous
  Country: US (occurrence: US)
  Receive Date: 20160708
  Receipt Date: 20160708
  Transmission Date: 20161109
  Serious: No
  Sender: FDA-Public Use
  Company Number: US-PFM-US-2016-1160

PATIENT
  Sex: Female
  Weight: 11.34 kg

DRUGS (1)
  1. HEMANGEOL [Suspect]
     Active Substance: PROPRANOLOL HYDROCHLORIDE
     Indication: HAEMANGIOMA
     Dosage: 3 ML, BID (2/DAY)
     Route: 048

REACTIONS (2)
  - Agitation [Recovered/Resolved]
  - Nightmare [Recovered/Resolved]
